FAERS Safety Report 23988587 (Version 1)
Quarter: 2024Q2

REPORT INFORMATION
  Report Type: Spontaneous
  Country: DE (occurrence: DE)
  Receive Date: 20240619
  Receipt Date: 20240619
  Transmission Date: 20240715
  Serious: Yes (Other)
  Sender: FDA-Public Use
  Company Number: DE-CADRBFARM-2024328566

PATIENT
  Age: 34 Year
  Sex: Male
  Weight: 85 kg

DRUGS (1)
  1. ESCITALOPRAM [Suspect]
     Active Substance: ESCITALOPRAM OXALATE
     Indication: Generalised anxiety disorder
     Dosage: UNK, 5MG; REVENUE PLANNED BY SEPTEMBER 25, 2024; CREEP OUT
     Route: 048

REACTIONS (3)
  - Erectile dysfunction [Recovered/Resolved with Sequelae]
  - Disturbance in sexual arousal [Recovered/Resolved with Sequelae]
  - Libido decreased [Recovered/Resolved with Sequelae]

NARRATIVE: CASE EVENT DATE: 20220601
